FAERS Safety Report 25463580 (Version 6)
Quarter: 2025Q4

REPORT INFORMATION
  Report Type: Spontaneous
  Country: JP (occurrence: JP)
  Receive Date: 20250620
  Receipt Date: 20251003
  Transmission Date: 20260118
  Serious: Yes (Death, Other)
  Sender: ALEXION PHARMACEUTICALS
  Company Number: JP-AstraZeneca-CH-00894389A

PATIENT
  Age: 60 Year
  Sex: Female
  Weight: 33.9 kg

DRUGS (10)
  1. ULTOMIRIS [Suspect]
     Active Substance: RAVULIZUMAB-CWVZ
     Indication: Atypical haemolytic uraemic syndrome
     Dosage: 1200 MILLIGRAM, SINGLE
  2. ESOMEPRAZOLE [Concomitant]
     Active Substance: ESOMEPRAZOLE
     Indication: Atypical haemolytic uraemic syndrome
     Dosage: 20 MILLIGRAM, QD
     Dates: start: 20250603
  3. SULFAMETHOXAZOLE\TRIMETHOPRIM [Concomitant]
     Active Substance: SULFAMETHOXAZOLE\TRIMETHOPRIM
     Indication: Atypical haemolytic uraemic syndrome
     Dosage: 1 DOSAGE FORM, QD
     Dates: start: 20250603
  4. ALFAROL [Concomitant]
     Active Substance: ALFACALCIDOL
     Indication: Atypical haemolytic uraemic syndrome
     Dosage: 0.5 MICROGRAM, QD
     Dates: start: 20250603
  5. TRAMADOL HYDROCHLORIDE [Concomitant]
     Active Substance: TRAMADOL HYDROCHLORIDE
     Indication: Atypical haemolytic uraemic syndrome
     Dosage: 100 MILLIGRAM, BID
     Dates: start: 20250603
  6. PREDONINE [Concomitant]
     Active Substance: PREDNISOLONE
     Indication: Atypical haemolytic uraemic syndrome
     Dosage: 25 MILLIGRAM, QD
     Dates: start: 20250603
  7. CALCIUM GLUCONATE [Concomitant]
     Active Substance: CALCIUM GLUCONATE
     Indication: Atypical haemolytic uraemic syndrome
     Dosage: 4.25 GRAM, QD
     Dates: start: 20250609
  8. POLARAMINE [Concomitant]
     Active Substance: DEXCHLORPHENIRAMINE MALEATE
     Indication: Atypical haemolytic uraemic syndrome
     Dosage: 5 MILLIGRAM, QD
     Dates: start: 20250609
  9. CEFTRIAXONE [Concomitant]
     Active Substance: CEFTRIAXONE
     Indication: Atypical haemolytic uraemic syndrome
     Dosage: 1 GRAM, QD
     Dates: start: 20250612
  10. CEFTRIAXONE [Concomitant]
     Active Substance: CEFTRIAXONE
     Indication: Prophylaxis

REACTIONS (1)
  - Cerebral haemorrhage [Fatal]

NARRATIVE: CASE EVENT DATE: 20250612
